FAERS Safety Report 5778028-9 (Version None)
Quarter: 2008Q2

REPORT INFORMATION
  Report Type: 
  Country: None (occurrence: None)
  Receive Date: 20080619
  Receipt Date: 20080611
  Transmission Date: 20081010
  Serious: Yes (Other)
  Sender: FDA-Public Use
  Company Number: BE-JNJFOC-20080601230

PATIENT
  Age: 57 Year
  Sex: Female
  Weight: 55 kg

DRUGS (12)
  1. DURAGESIC-100 [Suspect]
     Route: 062
  2. DURAGESIC-100 [Suspect]
     Indication: PAIN
     Route: 062
  3. DEPAKENE [Concomitant]
     Indication: EPILEPSY
     Route: 048
  4. KEPPRA [Concomitant]
     Indication: EPILEPSY
     Route: 048
  5. DIPHANTOINE [Concomitant]
     Route: 065
  6. MORPHINE [Concomitant]
  7. OMEPRAZOLE [Concomitant]
     Indication: GASTROOESOPHAGEAL REFLUX DISEASE
     Route: 048
  8. PERINDOPRIL ERBUMINE [Concomitant]
     Indication: HYPERTENSION
     Route: 048
  9. ELTHYRONE [Concomitant]
     Indication: HYPOTHYROIDISM
     Route: 048
  10. FUROSEMIDE [Concomitant]
     Indication: HYPERTENSION
     Route: 048
  11. EPANUTIN [Concomitant]
     Indication: EPILEPSY
     Route: 048
  12. AMLOR [Concomitant]
     Indication: HYPERTENSION

REACTIONS (1)
  - CLONUS [None]
